FAERS Safety Report 6945968-4 (Version None)
Quarter: 2010Q3

REPORT INFORMATION
  Report Type: 
  Country: None (occurrence: None)
  Receive Date: 20100827
  Receipt Date: 20100819
  Transmission Date: 20110219
  Serious: Yes (Other)
  Sender: FDA-Public Use
  Company Number: US-JNJFOC-20100808048

PATIENT
  Age: 68 Year
  Sex: Female

DRUGS (1)
  1. RISPERDAL [Suspect]
     Indication: SCHIZOPHRENIA
     Route: 048

REACTIONS (2)
  - DRUG LEVEL INCREASED [None]
  - PARKINSONISM [None]
